FAERS Safety Report 9753750 (Version 1)
Quarter: 2013Q4

REPORT INFORMATION
  Report Type: Spontaneous
  Country: US (occurrence: US)
  Receive Date: 20131213
  Receipt Date: 20131213
  Transmission Date: 20140711
  Serious: No
  Sender: FDA-Public Use
  Company Number: US-GILEAD-2010-0026700

PATIENT
  Sex: Female

DRUGS (11)
  1. LETAIRIS [Suspect]
     Indication: PULMONARY ARTERIAL HYPERTENSION
     Route: 048
     Dates: start: 20100122
  2. ASA [Concomitant]
  3. CLARITIN [Concomitant]
  4. NASONEX [Concomitant]
  5. TYLENOL [Concomitant]
  6. VYTORIN [Concomitant]
  7. PRILOSED [Concomitant]
  8. ADVAIR DISKUS [Concomitant]
  9. SYNTHROID [Concomitant]
  10. OMEGA-3 [Concomitant]
  11. MVI [Concomitant]

REACTIONS (3)
  - Hot flush [Unknown]
  - Erythema [Unknown]
  - Nasal congestion [Unknown]
